FAERS Safety Report 13970655 (Version 2)
Quarter: 2017Q4

REPORT INFORMATION
  Report Type: Spontaneous
  Country: US (occurrence: US)
  Receive Date: 20170914
  Receipt Date: 20171016
  Transmission Date: 20180321
  Serious: Yes (Death, Hospitalization, Other)
  Sender: FDA-Public Use
  Company Number: US-ASTELLAS-2016US040931

PATIENT
  Age: 83 Year
  Sex: Male

DRUGS (2)
  1. XTANDI [Suspect]
     Active Substance: ENZALUTAMIDE
     Indication: PROSTATE CANCER
     Route: 065
     Dates: start: 20160928, end: 20160928
  2. XTANDI [Suspect]
     Active Substance: ENZALUTAMIDE
     Indication: METASTASES TO BONE
     Route: 065

REACTIONS (4)
  - Malignant neoplasm progression [Recovered/Resolved]
  - Cardiac failure [Fatal]
  - Pneumonia [Recovered/Resolved]
  - Pneumonia [Not Recovered/Not Resolved]

NARRATIVE: CASE EVENT DATE: 20160929
